FAERS Safety Report 16773806 (Version 1)
Quarter: 2019Q3

REPORT INFORMATION
  Report Type: Spontaneous
  Country: CA (occurrence: CA)
  Receive Date: 20190904
  Receipt Date: 20190904
  Transmission Date: 20191005
  Serious: Yes (Other)
  Sender: FDA-Public Use
  Company Number: CA-B.I. PHARMACEUTICALS,INC./RIDGEFIELD-2019-BI-100344

PATIENT
  Age: 45 Year
  Sex: Female

DRUGS (5)
  1. ADVAIR HFA [Suspect]
     Active Substance: FLUTICASONE PROPIONATE\SALMETEROL XINAFOATE
     Indication: ASTHMA
     Route: 055
  2. BREO ELLIPTA [Suspect]
     Active Substance: FLUTICASONE FUROATE\VILANTEROL TRIFENATATE
     Indication: ASTHMA
     Dosage: DOSAGE FORM = INHALATION
     Route: 065
  3. SPIRIVA [Suspect]
     Active Substance: TIOTROPIUM BROMIDE MONOHYDRATE
     Indication: PRODUCT USED FOR UNKNOWN INDICATION
     Route: 055
  4. NUCALA [Suspect]
     Active Substance: MEPOLIZUMAB
     Indication: ASTHMA
     Route: 042
  5. SALBUTAMOL SULFATE [Suspect]
     Active Substance: ALBUTEROL SULFATE
     Indication: PRODUCT USED FOR UNKNOWN INDICATION
     Route: 065

REACTIONS (12)
  - Disability [Recovered/Resolved]
  - Cough [Recovered/Resolved]
  - Incorrect dose administered [Recovered/Resolved]
  - Dysplasia [Recovered/Resolved]
  - Spinal osteoarthritis [Recovered/Resolved]
  - Spondylitis [Recovered/Resolved]
  - Concussion [Recovered/Resolved]
  - Headache [Recovered/Resolved]
  - Transient ischaemic attack [Recovered/Resolved]
  - Enostosis [Recovered/Resolved]
  - Malaise [Recovered/Resolved]
  - Asthma [Recovered/Resolved]
